FAERS Safety Report 9578277 (Version 1)
Quarter: 2013Q4

REPORT INFORMATION
  Report Type: Spontaneous
  Country: US (occurrence: US)
  Receive Date: 20131001
  Receipt Date: 20131001
  Transmission Date: 20140711
  Serious: No
  Sender: FDA-Public Use
  Company Number: US-AMGEN-USASP2013012103

PATIENT
  Age: 57 Year
  Sex: Male
  Weight: 81.63 kg

DRUGS (9)
  1. ENBREL [Suspect]
     Indication: PRODUCT USED FOR UNKNOWN INDICATION
     Dosage: 50 MG, QWK
     Route: 058
  2. METFORMIN [Concomitant]
     Dosage: 500 MG, UNK
  3. FOLIC ACID [Concomitant]
     Dosage: UNK
  4. METOPROLOL [Concomitant]
     Dosage: 50 MG, UNK
  5. PREDNISONE [Concomitant]
     Dosage: 5 MG, UNK
  6. LISINOPRIL [Concomitant]
     Dosage: 10 MG, UNK
  7. METHOTREXATE [Concomitant]
     Dosage: 2.5 MG, UNK
  8. ASPIRIN [Concomitant]
     Dosage: 325 MG, UNK
  9. FISH OIL [Concomitant]
     Dosage: UNK

REACTIONS (2)
  - Nasopharyngitis [Recovering/Resolving]
  - Injection site bruising [Unknown]
